FAERS Safety Report 12350186 (Version 1)
Quarter: 2016Q2

REPORT INFORMATION
  Report Type: Spontaneous
  Country: FR (occurrence: FR)
  Receive Date: 20160510
  Receipt Date: 20160510
  Transmission Date: 20160815
  Serious: Yes (Death, Other)
  Sender: FDA-Public Use
  Company Number: FR-EMCURE-000837

PATIENT
  Age: 56 Year
  Sex: Male

DRUGS (5)
  1. MELPHALAN [Suspect]
     Active Substance: MELPHALAN
     Indication: MANTLE CELL LYMPHOMA
     Route: 042
     Dates: start: 20140616, end: 20140616
  2. BICNU [Suspect]
     Active Substance: CARMUSTINE
     Indication: MANTLE CELL LYMPHOMA
     Route: 042
     Dates: start: 20140611, end: 20140611
  3. ARACYTINE [Suspect]
     Active Substance: CYTARABINE
     Indication: MANTLE CELL LYMPHOMA
     Route: 042
     Dates: start: 20140612, end: 20140615
  4. ETOPOSIDE. [Suspect]
     Active Substance: ETOPOSIDE
     Indication: MANTLE CELL LYMPHOMA
     Route: 042
     Dates: start: 20140612, end: 20140615
  5. LEVOTHYROX [Concomitant]
     Active Substance: LEVOTHYROXINE

REACTIONS (4)
  - Interstitial lung disease [Fatal]
  - Acute respiratory failure [Fatal]
  - Renal failure [Unknown]
  - Shock [Unknown]

NARRATIVE: CASE EVENT DATE: 20140628
